FAERS Safety Report 8258953-X (Version None)
Quarter: 2012Q2

REPORT INFORMATION
  Report Type: 
  Country: None (occurrence: None)
  Receive Date: 20120404
  Receipt Date: 20120322
  Transmission Date: 20120825
  Serious: Yes (Other)
  Sender: FDA-Public Use
  Company Number: CA-ROCHE-1052545

PATIENT
  Sex: Male
  Weight: 90.8 kg

DRUGS (12)
  1. METHYLPREDNISOLONE [Concomitant]
     Indication: PREMEDICATION
     Route: 042
     Dates: start: 20090922, end: 20090922
  2. MABTHERA [Suspect]
     Dates: start: 20090922
  3. DIPHENHYDRAMINE HCL [Concomitant]
     Indication: PREMEDICATION
     Route: 048
     Dates: start: 20090922, end: 20090922
  4. ACETAMINOPHEN [Concomitant]
     Indication: PREMEDICATION
     Route: 048
     Dates: start: 20090922, end: 20090922
  5. ALLOPURINOL [Concomitant]
  6. MABTHERA [Suspect]
     Indication: RHEUMATOID ARTHRITIS
     Route: 042
     Dates: start: 20090908
  7. CARVEDILOL [Concomitant]
  8. LIPITOR [Concomitant]
  9. FUROSEMIDE [Concomitant]
  10. IMIPRAMINE [Concomitant]
  11. METHOTREXATE [Concomitant]
  12. COZAAR [Concomitant]

REACTIONS (1)
  - TYPE 2 DIABETES MELLITUS [None]
